FAERS Safety Report 5412543-2 (Version None)
Quarter: 2007Q3

REPORT INFORMATION
  Report Type: 
  Country: None (occurrence: None)
  Receive Date: 20070813
  Receipt Date: 20070803
  Transmission Date: 20080115
  Serious: Yes (Other)
  Sender: FDA-Public Use
  Company Number: B0482851A

PATIENT
  Sex: Male

DRUGS (2)
  1. AVANDIA [Suspect]
     Indication: TYPE 2 DIABETES MELLITUS
     Route: 048
     Dates: start: 20070604, end: 20070625
  2. AMARYL [Concomitant]
     Dosage: 6MG PER DAY

REACTIONS (3)
  - BLOOD PRESSURE SYSTOLIC INCREASED [None]
  - CONJUNCTIVAL HAEMORRHAGE [None]
  - HEADACHE [None]
